FAERS Safety Report 8165586-2 (Version None)
Quarter: 2012Q1

REPORT INFORMATION
  Report Type: 
  Country: None (occurrence: None)
  Receive Date: 20120227
  Receipt Date: 20120221
  Transmission Date: 20120608
  Serious: Yes (Death)
  Sender: FDA-Public Use
  Company Number: TR-US-EMD SERONO, INC.-7114551

PATIENT
  Sex: Male
  Weight: 79 kg

DRUGS (1)
  1. REBIF [Suspect]
     Indication: MULTIPLE SCLEROSIS
     Route: 058
     Dates: start: 20090101

REACTIONS (1)
  - MYOCARDIAL INFARCTION [None]
